FAERS Safety Report 5619073-3 (Version None)
Quarter: 2008Q1

REPORT INFORMATION
  Report Type: 
  Country: None (occurrence: None)
  Receive Date: 20080114
  Receipt Date: 20071205
  Transmission Date: 20080703
  Serious: Yes (Other)
  Sender: FDA-Public Use
  Company Number: 2007057588

PATIENT
  Age: 37 Year
  Sex: Female
  Weight: 45.4 kg

DRUGS (1)
  1. DEPO-SUBQ PROVERA 104 [Suspect]
     Indication: CONTRACEPTION
     Dosage: (104 MG), SUBCUTANEOUS
     Route: 058

REACTIONS (4)
  - INCORRECT DOSE ADMINISTERED [None]
  - INJECTION SITE INDURATION [None]
  - INJECTION SITE PAIN [None]
  - WEIGHT DECREASED [None]
